FAERS Safety Report 6820315-7 (Version None)
Quarter: 2010Q3

REPORT INFORMATION
  Report Type: 
  Country: None (occurrence: None)
  Receive Date: 20100707
  Receipt Date: 20100623
  Transmission Date: 20110219
  Serious: Yes (Other)
  Sender: FDA-Public Use
  Company Number: PHHY2010RU38785

PATIENT
  Sex: Female

DRUGS (3)
  1. ACLASTA [Suspect]
     Indication: OSTEOPOROSIS POSTMENOPAUSAL
     Dosage: UNK
     Dates: start: 20100322
  2. MOVALIS [Suspect]
     Dosage: UNK
     Route: 030
     Dates: start: 20100501
  3. MYDOCALM [Concomitant]

REACTIONS (2)
  - LEUKOPENIA [None]
  - RED BLOOD CELL SEDIMENTATION RATE INCREASED [None]
